FAERS Safety Report 10699977 (Version 1)
Quarter: 2014Q4

REPORT INFORMATION
  Report Type: Other
  Country: GB (occurrence: GB)
  Receive Date: 20141030
  Receipt Date: 20141030
  Transmission Date: 20150529
  Serious: Yes (Hospitalization, Disabling, Other)
  Sender: FDA-Public Use
  Company Number: GB-APOTEX-2014AP005289

PATIENT
  Age: 56 Year
  Sex: Female

DRUGS (1)
  1. ALENDRONATE [Suspect]
     Active Substance: ALENDRONATE SODIUM
     Indication: OSTEOPOROSIS
     Dosage: 70 MG, Q.WK.
     Route: 048
     Dates: start: 201012, end: 201404

REACTIONS (2)
  - Atypical femur fracture [Recovered/Resolved with Sequelae]
  - Arthralgia [Unknown]

NARRATIVE: CASE EVENT DATE: 201404
